FAERS Safety Report 12320224 (Version 2)
Quarter: 2016Q3

REPORT INFORMATION
  Report Type: Report from Study
  Country: IT (occurrence: IT)
  Receive Date: 20160429
  Receipt Date: 20160720
  Transmission Date: 20161109
  Serious: Yes (Hospitalization)
  Sender: FDA-Public Use
  Company Number: IT-MYLANLABS-2016M1017304

PATIENT

DRUGS (2)
  1. FUROSEMIDE. [Suspect]
     Active Substance: FUROSEMIDE
     Indication: ACUTE PULMONARY OEDEMA
  2. NICARDIPINE [Suspect]
     Active Substance: NICARDIPINE
     Indication: GESTATIONAL HYPERTENSION
     Route: 042

REACTIONS (3)
  - Off label use [Recovered/Resolved]
  - Acute pulmonary oedema [Recovered/Resolved]
  - Maternal exposure during pregnancy [Unknown]
